FAERS Safety Report 6120202-6 (Version None)
Quarter: 2009Q1

REPORT INFORMATION
  Report Type: 
  Country: None (occurrence: None)
  Receive Date: 20090316
  Receipt Date: 20090310
  Transmission Date: 20090719
  Serious: No
  Sender: FDA-Public Use
  Company Number: US-ABBOTT-09P-163-0562417-00

PATIENT
  Sex: Female
  Weight: 63.56 kg

DRUGS (10)
  1. TRILIPIX [Suspect]
     Indication: BLOOD TRIGLYCERIDES INCREASED
     Route: 048
     Dates: start: 20090303
  2. HYDROCHLOROTHIAZIDE [Concomitant]
     Indication: HYPERTENSION
     Route: 048
  3. SIMVASTATIN [Concomitant]
     Indication: BLOOD CHOLESTEROL INCREASED
     Route: 048
  4. LOTREL [Concomitant]
     Indication: HYPERTENSION
     Dosage: 10/40 MG
     Route: 048
  5. COREG CR [Concomitant]
     Indication: HYPERTENSION
     Route: 048
  6. ASPIRIN [Concomitant]
     Indication: CARDIOVASCULAR EVENT PROPHYLAXIS
     Route: 048
  7. VENLAFAXINE HCL [Concomitant]
     Indication: DEPRESSION
     Route: 048
  8. ADVAIR HFA [Concomitant]
     Indication: CHRONIC OBSTRUCTIVE PULMONARY DISEASE
     Dosage: 250/50 MG 1 PUFF TWICE DAILY
     Route: 055
  9. ATROVENT [Concomitant]
     Indication: CHRONIC OBSTRUCTIVE PULMONARY DISEASE
     Route: 055
  10. FLONASE [Concomitant]
     Indication: HYPERSENSITIVITY
     Dosage: 1 SQUIRT TWICE DAILY
     Route: 055

REACTIONS (1)
  - MUSCLE SPASMS [None]
